FAERS Safety Report 7518432-1 (Version None)
Quarter: 2011Q2

REPORT INFORMATION
  Report Type: 
  Country: None (occurrence: None)
  Receive Date: 20110602
  Receipt Date: 20110518
  Transmission Date: 20111010
  Serious: Yes (Hospitalization)
  Sender: FDA-Public Use
  Company Number: CA-JNJFOC-20100708390

PATIENT
  Sex: Female

DRUGS (4)
  1. REMICADE [Suspect]
     Dosage: SECOND INDUCTION DOSE
     Route: 042
     Dates: start: 20100101
  2. REMICADE [Suspect]
     Dosage: FIRST INDUCTION DOSE
     Route: 042
     Dates: start: 20100615
  3. REMICADE [Suspect]
     Route: 042
     Dates: start: 20100909
  4. REMICADE [Suspect]
     Indication: CROHN'S DISEASE
     Route: 042
     Dates: start: 20110510

REACTIONS (3)
  - INFECTION [None]
  - PANCREATITIS [None]
  - THROMBOSIS [None]
